FAERS Safety Report 9837766 (Version 2)
Quarter: 2014Q2

REPORT INFORMATION
  Report Type: Spontaneous
  Country: US (occurrence: US)
  Receive Date: 20140123
  Receipt Date: 20140616
  Transmission Date: 20141212
  Serious: Yes (Hospitalization, Other)
  Sender: FDA-Public Use
  Company Number: US-009507513-1401USA009958

PATIENT
  Age: 37 Year
  Sex: Female

DRUGS (1)
  1. NUVARING [Suspect]
     Indication: CONTRACEPTION
     Dosage: UNK
     Route: 067
     Dates: start: 20121111, end: 201304

REACTIONS (4)
  - Coagulopathy [Unknown]
  - Pulmonary embolism [Unknown]
  - Pulmonary infarction [Unknown]
  - Deep vein thrombosis [Unknown]
